FAERS Safety Report 8575213-8 (Version None)
Quarter: 2012Q2

REPORT INFORMATION
  Report Type: 
  Country: None (occurrence: None)
  Receive Date: 20120423
  Receipt Date: 20091121
  Transmission Date: 20120825
  Serious: Yes (Other)
  Sender: FDA-Public Use
  Company Number: PHEH2009US09290

PATIENT
  Age: 78 Year
  Sex: Female

DRUGS (1)
  1. EXJADE [Suspect]
     Dosage: 1000 MG, DAILY, ORAL, 500 MG, DAILY, ORAL
     Route: 048
     Dates: start: 20081023

REACTIONS (2)
  - DIARRHOEA [None]
  - DEHYDRATION [None]
